FAERS Safety Report 15837891 (Version 1)
Quarter: 2019Q1

REPORT INFORMATION
  Report Type: Spontaneous
  Country: US (occurrence: US)
  Receive Date: 20190117
  Receipt Date: 20190117
  Transmission Date: 20190417
  Serious: Yes (Life-Threatening, Disabling, Other)
  Sender: FDA-Public Use
  Company Number: None

PATIENT
  Age: 29 Year
  Sex: Female
  Weight: 45.9 kg

DRUGS (12)
  1. FLUCONAZOLE TABLET USP [Suspect]
     Active Substance: FLUCONAZOLE
     Indication: VULVOVAGINAL CANDIDIASIS
     Dosage: ?          QUANTITY:2 TABLET(S);OTHER FREQUENCY:IN 72 HRS;?
     Route: 048
     Dates: start: 20170404, end: 20170404
  2. ZYRTEC [Concomitant]
     Active Substance: CETIRIZINE HYDROCHLORIDE
  3. PROBIOTICS [Concomitant]
     Active Substance: PROBIOTICS NOS
  4. NETTLE LEAF [Concomitant]
  5. VITAMIN - D [Concomitant]
  6. COCONUT OIL [Concomitant]
     Active Substance: COCONUT OIL
  7. AMOXICILLIN AND CLAVULANATE POTASSIUM [Suspect]
     Active Substance: AMOXICILLIN\CLAVULANATE POTASSIUM
     Indication: STOMATITIS
     Dosage: ?          QUANTITY:14 TABLET(S);?
     Route: 048
     Dates: start: 20170411, end: 20170414
  8. ALLEGRA [Concomitant]
     Active Substance: FEXOFENADINE HYDROCHLORIDE
  9. QUERCETIN BROMELAIN [Concomitant]
  10. TAGAMET [Concomitant]
     Active Substance: CIMETIDINE
  11. BENADRYLL [Concomitant]
  12. VITAMIN - B [Concomitant]

REACTIONS (7)
  - Mechanical urticaria [None]
  - Type I hypersensitivity [None]
  - Impaired quality of life [None]
  - Lip swelling [None]
  - Pruritus generalised [None]
  - Lymphadenitis [None]
  - Anxiety [None]

NARRATIVE: CASE EVENT DATE: 20170411
